FAERS Safety Report 6318299-3 (Version None)
Quarter: 2009Q3

REPORT INFORMATION
  Report Type: 
  Country: None (occurrence: None)
  Receive Date: 20090821
  Receipt Date: 20090812
  Transmission Date: 20100115
  Serious: Yes (Hospitalization)
  Sender: FDA-Public Use
  Company Number: US-PFIZER INC-2008071436

PATIENT
  Sex: Female
  Weight: 100.6 kg

DRUGS (10)
  1. SUTENT [Suspect]
     Indication: METASTATIC RENAL CELL CARCINOMA
     Dosage: 25 MG, 1X/DAY
     Route: 048
     Dates: start: 20080321, end: 20090807
  2. GEMCITABINE [Suspect]
     Indication: METASTATIC RENAL CELL CARCINOMA
     Dosage: 750 MG/M2, UNK
     Dates: start: 20080321, end: 20080801
  3. ATIVAN [Concomitant]
     Dosage: 1 MG, AS NEEDED, EVERY 4H
     Route: 048
     Dates: start: 20080328, end: 20090303
  4. DIOVAN HCT [Concomitant]
     Dosage: 160/12.5, 1 TAB EVERY DAY
     Route: 048
     Dates: start: 20080321, end: 20081009
  5. LEVOTHYROXINE [Concomitant]
     Dosage: 100 UG, 1X/DAY
     Route: 048
     Dates: start: 20080321, end: 20090303
  6. COMPAZINE [Concomitant]
     Indication: NAUSEA
     Dosage: 10 MG, AS NEEDED, EVERY 6H
     Route: 048
     Dates: start: 20080225, end: 20090303
  7. METOPROLOL TARTRATE [Concomitant]
     Dosage: 100 MG, 1X/DAY
     Route: 048
     Dates: start: 20080304, end: 20080930
  8. OMEPRAZOLE [Concomitant]
     Dosage: 20 MG, 1X/DAY
     Route: 048
     Dates: start: 20080329, end: 20080916
  9. DILAUDID [Concomitant]
     Indication: PAIN
     Dosage: 8 MG, AS NEEDED, EVERY 3-4H
     Route: 048
     Dates: start: 20080110, end: 20090303
  10. MIRALAX [Concomitant]
     Dosage: 17 G, 1X/DAY
     Route: 048
     Dates: start: 20080225, end: 20090303

REACTIONS (3)
  - ALANINE AMINOTRANSFERASE INCREASED [None]
  - BLOOD ALKALINE PHOSPHATASE INCREASED [None]
  - BLOOD BILIRUBIN INCREASED [None]
